FAERS Safety Report 10021267 (Version 1)
Quarter: 2014Q1

REPORT INFORMATION
  Report Type: Spontaneous
  Country: DE (occurrence: DE)
  Receive Date: 20140319
  Receipt Date: 20140319
  Transmission Date: 20141002
  Serious: Yes (Other)
  Sender: FDA-Public Use
  Company Number: DE-B.I. PHARMACEUTICALS,INC./RIDGEFIELD-2014-BI-11390DE

PATIENT
  Sex: Male

DRUGS (3)
  1. PRADAXA [Suspect]
     Indication: ATRIAL FIBRILLATION
     Dosage: 220 MG
     Route: 065
  2. PRADAXA [Suspect]
     Indication: ATRIAL SEPTAL DEFECT
  3. PRADAXA [Suspect]
     Indication: TRANSIENT ISCHAEMIC ATTACK

REACTIONS (3)
  - Transient ischaemic attack [Unknown]
  - Epistaxis [Not Recovered/Not Resolved]
  - Intestinal haemorrhage [Unknown]
